FAERS Safety Report 19583059 (Version 1)
Quarter: 2021Q3

REPORT INFORMATION
  Report Type: Spontaneous
  Country: BR (occurrence: BR)
  Receive Date: 20210719
  Receipt Date: 20210719
  Transmission Date: 20211014
  Serious: Yes (Other)
  Sender: FDA-Public Use
  Company Number: BR-ABBVIE-21K-020-3996317-00

PATIENT
  Age: 62 Year
  Sex: Female

DRUGS (1)
  1. HUMIRA [Suspect]
     Active Substance: ADALIMUMAB
     Indication: RHEUMATOID ARTHRITIS
     Dosage: THERAPY START DATE OF HUMIRA? BEFORE JUL 2020?UNSPECIFIED DOSE
     Route: 058

REACTIONS (3)
  - Glaucoma [Unknown]
  - Basedow^s disease [Unknown]
  - Eye disorder [Unknown]
